FAERS Safety Report 7942881-0 (Version None)
Quarter: 2011Q4

REPORT INFORMATION
  Report Type: 
  Country: None (occurrence: None)
  Receive Date: 20111128
  Receipt Date: 20111122
  Transmission Date: 20120403
  Serious: Yes (Other)
  Sender: FDA-Public Use
  Company Number: US-ALEXION-A201101735

PATIENT
  Sex: Male

DRUGS (13)
  1. SOLIRIS [Suspect]
     Indication: HAEMOLYTIC URAEMIC SYNDROME
     Dosage: 300 MG, UNK
     Route: 042
     Dates: start: 20111007, end: 20111104
  2. HYDRALAZINE HCL [Concomitant]
     Dosage: UNK
  3. VITAMIN D [Concomitant]
     Dosage: UNK
  4. VASOTEC [Concomitant]
     Dosage: UNK
  5. EPOGEN [Concomitant]
     Dosage: UNK
  6. SYNTHROID [Concomitant]
     Dosage: UNK
  7. VISTARIL [Concomitant]
     Dosage: UNK
  8. ANTIHYPERTENSIVES [Concomitant]
     Dosage: UNK
  9. SODIUM BICARBONATE [Concomitant]
     Dosage: UNK
  10. ELECTROLYTE [Concomitant]
     Dosage: UNK
  11. FENTANYL-100 [Concomitant]
     Dosage: UNK
  12. ANTIBIOTICS [Concomitant]
     Dosage: UNK
  13. IRON [Concomitant]
     Dosage: UNK

REACTIONS (1)
  - BONE DISORDER [None]
